FAERS Safety Report 4918932-4 (Version None)
Quarter: 2006Q1

REPORT INFORMATION
  Report Type: 
  Country: None (occurrence: None)
  Receive Date: 20060222
  Receipt Date: 20050114
  Transmission Date: 20060701
  Serious: Yes (Other)
  Sender: FDA-Public Use
  Company Number: US-GLAXOSMITHKLINE-A0540776A

PATIENT
  Age: 54 Year
  Sex: Male

DRUGS (11)
  1. PAROXETINE HCL [Suspect]
     Indication: DEPRESSION
     Route: 048
     Dates: start: 20041001
  2. PAROXETINE HCL [Suspect]
  3. NEURONTIN [Concomitant]
  4. TOPROL-XL [Concomitant]
  5. NAMENDA [Concomitant]
  6. NIASPAN [Concomitant]
  7. ENALAPRIL [Concomitant]
  8. PROVIGIL [Concomitant]
  9. PREVACID [Concomitant]
  10. BUPROPION HCL [Concomitant]
  11. CLONAZEPAM [Concomitant]

REACTIONS (2)
  - IRRITABILITY [None]
  - SUICIDAL IDEATION [None]
